FAERS Safety Report 8369672-3 (Version None)
Quarter: 2012Q2

REPORT INFORMATION
  Report Type: 
  Country: None (occurrence: None)
  Receive Date: 20120518
  Receipt Date: 20120515
  Transmission Date: 20120825
  Serious: Yes (Life-Threatening, Hospitalization, Disabling, Other)
  Sender: FDA-Public Use
  Company Number: FR-ASTELLAS-2012EU000522

PATIENT
  Sex: Male
  Weight: 90 kg

DRUGS (8)
  1. PREDNISONE TAB [Concomitant]
     Dosage: 30 MG, UNKNOWN/D
     Route: 048
     Dates: start: 20110101, end: 20120131
  2. PROGRAF [Suspect]
     Dosage: 3 MG, BID
     Route: 048
     Dates: start: 20111231, end: 20120116
  3. PROGRAF [Suspect]
     Indication: NEPHROTIC SYNDROME
     Dosage: 3.5 MG, BID
     Route: 048
     Dates: start: 20111030, end: 20111230
  4. PREDNISONE TAB [Concomitant]
     Indication: NEPHROTIC SYNDROME
     Dosage: 35 MG, UNKNOWN/D
     Route: 048
     Dates: start: 20111029, end: 20111030
  5. PERINDOPRIL ERBUMINE [Concomitant]
     Indication: HYPERTENSION
     Dosage: 10 MG, UNKNOWN/D
     Route: 048
     Dates: start: 20020101
  6. EZETIMIBE [Concomitant]
     Indication: HYPERCHOLESTEROLAEMIA
     Dosage: UNK
     Route: 048
     Dates: start: 20060101
  7. IRBESARTAN [Concomitant]
     Indication: HYPERTENSION
     Dosage: 300 MG, UNKNOWN/D
     Route: 048
     Dates: start: 20020101
  8. ALLOPURINOL [Concomitant]
     Indication: HYPERURICAEMIA
     Dosage: 300 MG, UNKNOWN/D
     Route: 048
     Dates: start: 20040101

REACTIONS (10)
  - DEHYDRATION [None]
  - HYPERKALAEMIA [None]
  - DIABETIC HYPEROSMOLAR COMA [None]
  - OFF LABEL USE [None]
  - WEIGHT DECREASED [None]
  - HYPEROSMOLAR STATE [None]
  - RENAL FAILURE [None]
  - DIABETES MELLITUS [None]
  - VISUAL IMPAIRMENT [None]
  - FATIGUE [None]
